FAERS Safety Report 6181983-9 (Version None)
Quarter: 2009Q2

REPORT INFORMATION
  Report Type: 
  Country: None (occurrence: None)
  Receive Date: 20090505
  Receipt Date: 20090421
  Transmission Date: 20091009
  Serious: Yes (Other)
  Sender: FDA-Public Use
  Company Number: 233582K09USA

PATIENT
  Age: 37 Year
  Sex: Female

DRUGS (9)
  1. REBIF [Suspect]
     Indication: MULTIPLE SCLEROSIS
     Dosage: 44 MVH, 3 IN 1 WEEKS, SUBCUTANEOUS
     Route: 058
     Dates: start: 20040720, end: 20080101
  2. TEGRETOL [Concomitant]
  3. LYRICA [Concomitant]
  4. CYMBALTA [Concomitant]
  5. PEPCID [Concomitant]
  6. MAXALT (RIZATRIPTAN) [Concomitant]
  7. PERCOCET [Concomitant]
  8. ADVIL [Concomitant]
  9. INDERAL [Concomitant]

REACTIONS (1)
  - SYSTEMIC LUPUS ERYTHEMATOSUS [None]
